FAERS Safety Report 5531318-7 (Version None)
Quarter: 2007Q4

REPORT INFORMATION
  Report Type: 
  Country: None (occurrence: None)
  Receive Date: 20071128
  Receipt Date: 20071115
  Transmission Date: 20080405
  Serious: Yes (Other)
  Sender: FDA-Public Use
  Company Number: B0496784A

PATIENT
  Age: 40 Year

DRUGS (3)
  1. CEFTAZIDIME SODIUM [Suspect]
     Indication: HEPATIC CIRRHOSIS
     Dosage: 1.54 GRAM(S) / INTRAVENOUS
     Route: 042
  2. DIURETIC [Concomitant]
  3. ELECTROLYTE SOLUTION [Concomitant]

REACTIONS (3)
  - DYSKINESIA [None]
  - HEPATIC ENCEPHALOPATHY [None]
  - MYALGIA [None]
